FAERS Safety Report 6044194-3 (Version None)
Quarter: 2009Q1

REPORT INFORMATION
  Report Type: 
  Country: None (occurrence: None)
  Receive Date: 20090115
  Receipt Date: 20090115
  Transmission Date: 20090719
  Serious: No
  Sender: FDA-Public Use
  Company Number: None

PATIENT
  Sex: Female

DRUGS (11)
  1. AREDIA [Suspect]
     Indication: BREAST CANCER
     Dosage: 90 MG MONTHLY IV
     Route: 042
     Dates: start: 20000601, end: 20010101
  2. ASPIRIN [Concomitant]
  3. CALCIUM [Concomitant]
  4. LASIX [Concomitant]
  5. LEVOXYL [Concomitant]
  6. PREDNISONE [Concomitant]
  7. SINGULAIR [Concomitant]
  8. TAMOXIFEN CITRATE [Concomitant]
  9. ADVAIR DISKUS 100/50 [Concomitant]
  10. ALBUTEROL [Concomitant]
  11. ZAROXOLYN [Concomitant]

REACTIONS (5)
  - BONE DISORDER [None]
  - GINGIVAL ERYTHEMA [None]
  - JAW DISORDER [None]
  - PURULENCE [None]
  - SECRETION DISCHARGE [None]
